FAERS Safety Report 5086441-0 (Version None)
Quarter: 2006Q3

REPORT INFORMATION
  Report Type: 
  Country: None (occurrence: None)
  Receive Date: 20060821
  Receipt Date: 20060821
  Transmission Date: 20061208
  Serious: Yes (Hospitalization)
  Sender: FDA-Public Use
  Company Number: None

PATIENT
  Age: 72 Year
  Sex: Male
  Weight: 97.5234 kg

DRUGS (12)
  1. DIGOXIN [Suspect]
     Indication: VENTRICULAR TACHYCARDIA
     Dosage: 0.125 DAILY PO
     Route: 048
     Dates: start: 20060424, end: 20060818
  2. ATORVASTATIN CALCIUM [Concomitant]
  3. DIGOXIN [Concomitant]
  4. DOCUSATE NA [Concomitant]
  5. FUROSEMIDE [Concomitant]
  6. OMEPRAZOLE [Concomitant]
  7. DOCUSATE NA [Concomitant]
  8. FLUNISOLIDE [Concomitant]
  9. TRAMADOL HCL [Concomitant]
  10. GLYBURIDE [Concomitant]
  11. LEVOTHYROXINE SODIUM [Concomitant]
  12. LIPITOR [Concomitant]

REACTIONS (19)
  - BRAIN NATRIURETIC PEPTIDE INCREASED [None]
  - CARDIOMEGALY [None]
  - CONFUSIONAL STATE [None]
  - DEPRESSED LEVEL OF CONSCIOUSNESS [None]
  - DYSPNOEA [None]
  - DYSPNOEA PAROXYSMAL NOCTURNAL [None]
  - HYPERKALAEMIA [None]
  - INCISION SITE COMPLICATION [None]
  - LETHARGY [None]
  - LUNG INFILTRATION [None]
  - MYOGLOBIN BLOOD INCREASED [None]
  - OEDEMA PERIPHERAL [None]
  - ORTHOPNOEA [None]
  - PO2 DECREASED [None]
  - PRODUCTIVE COUGH [None]
  - SOMNOLENCE [None]
  - SPUTUM DISCOLOURED [None]
  - THERAPEUTIC AGENT TOXICITY [None]
  - WHITE BLOOD CELL COUNT INCREASED [None]
